FAERS Safety Report 18381518 (Version 2)
Quarter: 2020Q4

REPORT INFORMATION
  Report Type: Spontaneous
  Country: JP (occurrence: JP)
  Receive Date: 20201014
  Receipt Date: 20201118
  Transmission Date: 20210114
  Serious: Yes (Other)
  Sender: FDA-Public Use
  Company Number: JP-ORION CORPORATION ORION PHARMA-ENTC2020-0248

PATIENT
  Age: 75 Year
  Sex: Male

DRUGS (5)
  1. DOPS [Concomitant]
     Active Substance: DROXIDOPA
     Route: 065
  2. STALEVO [Suspect]
     Active Substance: CARBIDOPA\ENTACAPONE\LEVODOPA
     Indication: PARKINSON^S DISEASE
     Dosage: COMBINATION OF L50 AND L100
     Route: 048
  3. NOURIAST [Concomitant]
     Active Substance: ISTRADEFYLLINE
     Route: 065
  4. TRERIEF [Concomitant]
     Active Substance: ZONISAMIDE
     Route: 065
  5. NEUPRO [Concomitant]
     Active Substance: ROTIGOTINE
     Route: 062

REACTIONS (1)
  - Parkinson^s disease [Not Recovered/Not Resolved]
